FAERS Safety Report 8870547 (Version 1)
Quarter: 2012Q4

REPORT INFORMATION
  Report Type: 
  Country: US (occurrence: US)
  Receive Date: 20121026
  Receipt Date: 20121026
  Transmission Date: 20130627
  Serious: No
  Sender: FDA-Public Use
  Company Number: US-AMGEN-USASP2012043384

PATIENT
  Age: 47 Year
  Sex: Female
  Weight: 102.4 kg

DRUGS (13)
  1. ENBREL [Suspect]
     Indication: PRODUCT USED FOR UNKNOWN INDICATION
     Dosage: 50 mg/ml, qwk
     Route: 058
  2. PLAQUENIL                          /00072602/ [Concomitant]
     Dosage: 200 mg, UNK
  3. AMBIEN [Concomitant]
     Dosage: 5 mg, UNK
  4. METHOTREXATE [Concomitant]
     Dosage: 2.5 mg, UNK
  5. PREDNISONE [Concomitant]
     Dosage: 1 mg, UNK
  6. ZYRTEC [Concomitant]
     Dosage: 5 mg, UNK
  7. NORVASC [Concomitant]
     Dosage: 2.5 mg, UNK
  8. FOLIC ACID [Concomitant]
     Dosage: 1 mg, UNK
  9. PROZAC [Concomitant]
     Dosage: 10 mg, UNK
  10. MULTIVITAMIN                       /00097801/ [Concomitant]
  11. ALEVE [Concomitant]
     Dosage: 220 mg, UNK
  12. CALCIUM [Concomitant]
     Dosage: 600 UNK, UNK
  13. VITAMIN D /00107901/ [Concomitant]
     Dosage: 400 UNK, UNK

REACTIONS (1)
  - Drug ineffective [Unknown]
